FAERS Safety Report 13996460 (Version 6)
Quarter: 2018Q3

REPORT INFORMATION
  Report Type: Report from Study
  Country: JP (occurrence: JP)
  Receive Date: 20170921
  Receipt Date: 20180910
  Transmission Date: 20181010
  Serious: Yes (Hospitalization, Other)
  Sender: FDA-Public Use
  Company Number: PHJP2017JP028785

PATIENT
  Age: 75 Year
  Sex: Female
  Weight: 59 kg

DRUGS (19)
  1. LOXOPROFEN NA [Concomitant]
     Active Substance: LOXOPROFEN SODIUM
     Indication: PSORIASIS
     Dosage: 100 MG, UNK
     Route: 065
  2. CRAVIT [Concomitant]
     Active Substance: LEVOFLOXACIN
     Indication: PRODUCT USED FOR UNKNOWN INDICATION
     Dosage: 500 MG, UNK
     Route: 048
     Dates: start: 20170831, end: 20170906
  3. SALAZOSULFAPYRIDINE [Concomitant]
     Active Substance: SULFASALAZINE
     Indication: SPONDYLITIS
     Dosage: 1000 MG, UNK
     Route: 048
     Dates: start: 20170531
  4. AMLODIPINE [Concomitant]
     Active Substance: AMLODIPINE BESYLATE
     Indication: HYPERTENSION
     Dosage: 5 MG, UNK
     Route: 048
     Dates: start: 20150715
  5. VONFENAC [Concomitant]
     Active Substance: DICLOFENAC SODIUM
     Indication: PSORIASIS
     Dosage: UNK
     Route: 065
     Dates: start: 20170524
  6. COSENTYX [Suspect]
     Active Substance: SECUKINUMAB
     Indication: SPONDYLITIS
     Dosage: 150 MG, QW
     Route: 058
     Dates: start: 20170718, end: 20170815
  7. REZALTAS [Concomitant]
     Active Substance: AZELNIDIPINE\OLMESARTAN MEDOXOMIL
     Indication: HYPERTENSION
     Dosage: 16 MG (1DF: OLMESARTAN MEDOXOMIL 20MG/AZELNIDIPINE 16MG), UNK
     Route: 048
     Dates: start: 20150715
  8. FOSAMAC [Concomitant]
     Active Substance: ALENDRONATE SODIUM
     Indication: PROPHYLAXIS
     Dosage: 35 MG, QW
     Route: 048
     Dates: start: 20150807
  9. AMLODIPINE [Concomitant]
     Active Substance: AMLODIPINE BESYLATE
     Indication: SPONDYLITIS
     Dosage: 5 MG, UNK
     Route: 048
     Dates: start: 20170807
  10. PREDNISOLON [Suspect]
     Active Substance: PREDNISOLONE
     Indication: PSORIASIS
     Dosage: 5 MG, UNK
     Route: 048
     Dates: start: 20170525
  11. HYPEN [Concomitant]
     Indication: PSORIASIS
     Dosage: 200 MG, UNK
     Route: 048
     Dates: start: 20150825
  12. SALAZOSULFAPYRIDINE [Concomitant]
     Active Substance: SULFASALAZINE
     Indication: PSORIASIS
  13. PURSENNID [Concomitant]
     Active Substance: SENNOSIDES A AND B
     Indication: CONSTIPATION
     Dosage: 24 MG, UNK
     Route: 048
     Dates: start: 20150807
  14. HYPEN [Concomitant]
     Indication: SPONDYLITIS
     Dosage: 400 MG, UNK
     Route: 048
  15. COSENTYX [Suspect]
     Active Substance: SECUKINUMAB
     Indication: PSORIATIC ARTHROPATHY
  16. PREDNISOLON [Suspect]
     Active Substance: PREDNISOLONE
     Indication: SPONDYLITIS
     Dosage: 5 MG, QD
     Route: 065
     Dates: start: 20150714
  17. NEXIUM [Concomitant]
     Active Substance: ESOMEPRAZOLE MAGNESIUM
     Indication: PROPHYLAXIS
     Dosage: 10 MG, UNK
     Route: 048
     Dates: start: 20150710
  18. MUCOSTA [Concomitant]
     Active Substance: REBAMIPIDE
     Indication: PROPHYLAXIS
     Dosage: 200 MG, UNK
     Route: 048
     Dates: start: 20150710
  19. MIYA?BM [Concomitant]
     Active Substance: CLOSTRIDIUM BUTYRICUM SPORES STRAIN M-55
     Indication: PRODUCT USED FOR UNKNOWN INDICATION
     Dosage: 60 MG, UNK
     Route: 048
     Dates: start: 20170831, end: 20170906

REACTIONS (4)
  - Abdominal pain lower [Unknown]
  - Off label use [Unknown]
  - Pyrexia [Unknown]
  - Diverticulitis [Recovering/Resolving]

NARRATIVE: CASE EVENT DATE: 20170830
